FAERS Safety Report 8432510-4 (Version None)
Quarter: 2012Q2

REPORT INFORMATION
  Report Type: 
  Country: None (occurrence: None)
  Receive Date: 20120613
  Receipt Date: 20120611
  Transmission Date: 20120825
  Serious: Yes (Hospitalization, Other)
  Sender: FDA-Public Use
  Company Number: PHEH2012US003470

PATIENT
  Sex: Male

DRUGS (8)
  1. FISH OIL [Concomitant]
  2. GILENYA [Suspect]
     Indication: MULTIPLE SCLEROSIS
     Dosage: 0.5 MG, QD
     Route: 048
     Dates: end: 20120601
  3. OXYBUTYNIN [Concomitant]
     Dosage: 5 MG, UNK
  4. ASCORBIC ACID [Concomitant]
     Dosage: 100 MG, UNK
  5. AMANTADINE HCL [Concomitant]
     Dosage: 100 MG, UNK
  6. BACLOFEN [Concomitant]
     Dosage: 20 MG, UNK
  7. VITAMIN D [Concomitant]
     Dosage: 400 U, UNK
  8. LYRICA [Concomitant]
     Dosage: 100 MG, UNK

REACTIONS (2)
  - URINARY TRACT INFECTION [None]
  - ASTHENIA [None]
